FAERS Safety Report 11780232 (Version 1)
Quarter: 2015Q4

REPORT INFORMATION
  Report Type: Spontaneous
  Country: US (occurrence: US)
  Receive Date: 20151126
  Receipt Date: 20151126
  Transmission Date: 20160305
  Serious: No
  Sender: FDA-Public Use
  Company Number: US-JNJFOC-20151020958

PATIENT
  Age: 64 Year
  Sex: Female
  Weight: 54.43 kg

DRUGS (4)
  1. TYLENOL EXTRA STRENGTH [Suspect]
     Active Substance: ACETAMINOPHEN
     Indication: PAIN IN EXTREMITY
     Dosage: PATIENT STARTS WITH 1 TABLET AND IF NEEDED  TAKES ANOTHER (2X)
     Route: 048
     Dates: start: 201310
  2. LUNESTA [Concomitant]
     Active Substance: ESZOPICLONE
     Indication: SLEEP DISORDER THERAPY
     Dosage: NIGHTLY
     Route: 065
  3. VITAMIN D3 [Concomitant]
     Active Substance: CHOLECALCIFEROL
     Indication: PROPHYLAXIS
     Dosage: 1 1/2 YEARS
     Route: 065
  4. KLONOPIN [Concomitant]
     Active Substance: CLONAZEPAM
     Indication: SLEEP DISORDER THERAPY
     Dosage: NIGHTLY, 3 MONTHS
     Route: 065

REACTIONS (6)
  - Therapeutic response unexpected [Unknown]
  - Product container issue [Unknown]
  - Blood testosterone increased [Recovering/Resolving]
  - Somnolence [Recovering/Resolving]
  - Liver function test abnormal [Recovering/Resolving]
  - Incorrect dose administered [Recovering/Resolving]
